FAERS Safety Report 5170513-6 (Version None)
Quarter: 2006Q4

REPORT INFORMATION
  Report Type: 
  Country: None (occurrence: None)
  Receive Date: 20061212
  Receipt Date: 20061202
  Transmission Date: 20070319
  Serious: Yes (Other)
  Sender: FDA-Public Use
  Company Number: TW-ABBOTT-06P-153-0352643-00

PATIENT
  Sex: Female

DRUGS (4)
  1. REDUCTIL 15MG [Suspect]
     Indication: OBESITY
     Route: 048
     Dates: start: 20060601, end: 20061001
  2. REDUCTIL 15MG [Suspect]
  3. REDUCTIL 15MG [Suspect]
  4. REDUCTIL 15MG [Suspect]
     Route: 048
     Dates: start: 20060601, end: 20061001

REACTIONS (2)
  - LYMPHOMA [None]
  - PYREXIA [None]
